FAERS Safety Report 9222600 (Version 1)
Quarter: 2013Q1

REPORT INFORMATION
  Report Type: Spontaneous
  Country: US (occurrence: None)
  Receive Date: 20120914
  Receipt Date: 20120914
  Transmission Date: 20140127
  Serious: Yes (Hospitalization, Other)
  Sender: FDA-Public Use
  Company Number: JPI-P-021458

PATIENT
  Age: 35 Year
  Sex: Male

DRUGS (2)
  1. XYREM (500 MILLIGRAM/MILLILITERS, SOLUTION) (SODIUM OXYBATE) [Suspect]
     Indication: NARCOLEPSY
     Dosage: 3 GM, 2 IN 1 D
     Route: 048
     Dates: start: 20100624
  2. D-AMPHETAMNE [Concomitant]

REACTIONS (4)
  - Delirium [None]
  - Abnormal behaviour [None]
  - Unresponsive to stimuli [None]
  - Overdose [None]
